FAERS Safety Report 8170081-0 (Version None)
Quarter: 2012Q1

REPORT INFORMATION
  Report Type: 
  Country: None (occurrence: None)
  Receive Date: 20120228
  Receipt Date: 20120222
  Transmission Date: 20120608
  Serious: Yes (Other)
  Sender: FDA-Public Use
  Company Number: IN-PFIZER INC-2012048805

PATIENT
  Age: 53 Year
  Sex: Male

DRUGS (1)
  1. SUTENT [Suspect]
     Indication: METASTATIC RENAL CELL CARCINOMA
     Dosage: 25 MG, 1X/DAY
     Route: 048
     Dates: start: 20110902

REACTIONS (5)
  - ASCITES [None]
  - ABDOMINAL DISTENSION [None]
  - CONJUNCTIVAL PALLOR [None]
  - HEPATIC FUNCTION ABNORMAL [None]
  - URINE OUTPUT DECREASED [None]
